FAERS Safety Report 8566979-1 (Version None)
Quarter: 2012Q3

REPORT INFORMATION
  Report Type: 
  Country: None (occurrence: None)
  Receive Date: 20120803
  Receipt Date: 20111215
  Transmission Date: 20120928
  Serious: No
  Sender: FDA-Public Use
  Company Number: US-ABBOTT-11P-163-0884630-00

PATIENT
  Sex: Female
  Weight: 77.18 kg

DRUGS (2)
  1. NIASPAN [Suspect]
     Indication: BLOOD CHOLESTEROL INCREASED
     Dates: start: 20111101, end: 20111201
  2. NIASPAN [Suspect]
     Dates: start: 20111201

REACTIONS (2)
  - FLUSHING [None]
  - PAIN IN EXTREMITY [None]
